FAERS Safety Report 7866926-1 (Version None)
Quarter: 2011Q4

REPORT INFORMATION
  Report Type: 
  Country: None (occurrence: None)
  Receive Date: 20111028
  Receipt Date: 20111025
  Transmission Date: 20120403
  Serious: Yes (Hospitalization, Congenital Anomaly, Other)
  Sender: FDA-Public Use
  Company Number: US-PFIZER INC-2011077307

PATIENT
  Sex: Male

DRUGS (33)
  1. ZOLOFT [Suspect]
     Dosage: 50 MG, UNK
     Route: 064
  2. ATROVENT [Concomitant]
     Dosage: UNIT DOSE HAND HELD NEBULIZER EVERY 4 HOURS
     Route: 064
  3. SEREVENT [Concomitant]
     Dosage: 21 UG, UNK
     Route: 064
     Dates: start: 20020201
  4. NICOTINE [Concomitant]
     Dosage: 14 MG FOR 24 HOUR, UNK
     Route: 064
     Dates: start: 20020424
  5. SEROQUEL [Concomitant]
     Dosage: 100 MG, 1X/DAY, AT BED TIME
     Route: 064
  6. SEROQUEL [Concomitant]
     Dosage: 300 MG, UNK
     Route: 064
     Dates: start: 20020201
  7. HYDROCODONE [Concomitant]
     Indication: ARTHRITIS
     Dosage: 5/500 TWICE A DAY FOR ONE MONTH
     Route: 064
  8. BENADRYL [Concomitant]
     Dosage: UNK
     Route: 064
     Dates: start: 20020724
  9. NICODERM [Concomitant]
     Dosage: 21 MG PER HOUR PATCH, ONE PATCH ONE DAY
     Route: 064
  10. FLOVENT [Concomitant]
     Indication: ASTHMA
     Dosage: 110 UG, UNK
     Route: 064
     Dates: start: 20020114
  11. BIAXIN XL [Concomitant]
     Dosage: 500 MG, UNK
     Route: 064
     Dates: start: 20020119
  12. ZOLOFT [Suspect]
     Dosage: 200 MG, 1X/DAY
     Route: 064
     Dates: start: 20011127
  13. ALBUTEROL [Concomitant]
     Dosage: UNIT DOSE HAND HELD NEBULIZER EVERY 4 HOURS WHILE AWAKE
     Route: 064
  14. ALBUTEROL [Concomitant]
     Dosage: 90 UG, UNK
     Route: 064
     Dates: start: 20020201
  15. AEROBID [Concomitant]
     Dosage: UNK
     Route: 064
     Dates: start: 20020111
  16. AMOXICILLIN [Concomitant]
     Dosage: 500 MG, UNK
     Route: 064
     Dates: start: 20020309
  17. HYDROXYZINE [Concomitant]
     Dosage: 25 MG, UNK
     Route: 064
     Dates: start: 20020407
  18. PREDNISONE [Concomitant]
     Dosage: 10 MG, UNK
     Route: 064
     Dates: start: 20020119
  19. MULTI-VITAMINS [Concomitant]
     Dosage: UNK
     Route: 064
     Dates: start: 20020328
  20. ATROVENT [Concomitant]
     Dosage: UNK
     Route: 064
     Dates: start: 20020702
  21. COMBIVENT [Concomitant]
     Dosage: UNK
     Route: 064
     Dates: start: 20020201
  22. MONTELUKAST [Concomitant]
     Dosage: 10 MG, UNK
     Route: 064
     Dates: start: 20020422
  23. ZOLOFT [Suspect]
     Indication: DEPRESSION
     Dosage: 100 MG ONCE AT BED TIME
     Route: 064
  24. REVIA [Concomitant]
     Dosage: 25 MG, 2X/DAY
     Route: 064
     Dates: start: 20011030, end: 20020108
  25. MULTI-VITAMINS [Concomitant]
     Dosage: ONCE A DAY
     Route: 064
  26. CEFTIN [Concomitant]
     Dosage: UNK
     Route: 064
     Dates: start: 20020628
  27. ACETAMINOPHEN AND HYDROCODONE BITARTRATE [Concomitant]
     Dosage: 5/500
     Route: 064
     Dates: start: 20020114
  28. SOLU-MEDROL [Concomitant]
     Dosage: 125 MG, EVERY 6 HOURS, EVERY 8 HOURS
     Route: 064
  29. CEFTIN [Concomitant]
     Dosage: 250 MG, 2X/DAY WITH FOOD
     Route: 064
  30. METHYLPREDNISOLONE ACETATE [Concomitant]
     Dosage: 4 MG, UNK
     Route: 064
     Dates: start: 20020626
  31. BENADRYL [Concomitant]
     Dosage: 25 MG, EVERY 4 HRS
     Route: 064
  32. VANCERIL [Concomitant]
     Dosage: UNK
     Route: 064
     Dates: start: 20020305
  33. ADVAIR DISKUS 100/50 [Concomitant]
     Dosage: 5/500
     Route: 064
     Dates: start: 20020701

REACTIONS (3)
  - CONVULSION NEONATAL [None]
  - TALIPES [None]
  - MATERNAL EXPOSURE DURING PREGNANCY [None]
